FAERS Safety Report 8186209-2 (Version None)
Quarter: 2012Q1

REPORT INFORMATION
  Report Type: 
  Country: None (occurrence: None)
  Receive Date: 20120306
  Receipt Date: 20120302
  Transmission Date: 20120608
  Serious: No
  Sender: FDA-Public Use
  Company Number: US-PFIZER INC-2012057129

PATIENT
  Sex: Female
  Weight: 76 kg

DRUGS (2)
  1. QUINAPRIL HCL [Suspect]
     Indication: HYPERTENSION
     Dosage: 40 MG, DAILY
     Route: 048
  2. MOBIC [Concomitant]
     Indication: JOINT INJURY
     Dosage: 15 MG, DAILY
     Route: 048

REACTIONS (1)
  - DRUG INEFFECTIVE [None]
